FAERS Safety Report 8840738 (Version 1)
Quarter: 2012Q4

REPORT INFORMATION
  Report Type: 
  Country: US (occurrence: US)
  Receive Date: 20121015
  Receipt Date: 20121015
  Transmission Date: 20130627
  Serious: Yes (Other)
  Sender: FDA-Public Use
  Company Number: US-ROCHE-1131312

PATIENT
  Sex: Male

DRUGS (2)
  1. RITUXAN [Suspect]
     Indication: CHRONIC LYMPHOCYTIC LEUKAEMIA
     Route: 065
  2. LASIX [Concomitant]

REACTIONS (12)
  - Anaemia [Unknown]
  - Thrombocytopenia [Unknown]
  - Chronic lymphocytic leukaemia [Unknown]
  - Joint swelling [Unknown]
  - Oedema peripheral [Unknown]
  - Decreased appetite [Unknown]
  - White blood cell count decreased [Unknown]
  - Ecchymosis [Unknown]
  - Petechiae [Unknown]
  - Contusion [Unknown]
  - Lymphocytosis [Unknown]
  - Weight decreased [Unknown]
